FAERS Safety Report 8593095-5 (Version None)
Quarter: 2012Q3

REPORT INFORMATION
  Report Type: 
  Country: None (occurrence: None)
  Receive Date: 20120814
  Receipt Date: 20120809
  Transmission Date: 20120928
  Serious: Yes (Other)
  Sender: FDA-Public Use
  Company Number: US-JNJFOC-20120713704

PATIENT
  Age: 6 Decade
  Sex: Female

DRUGS (4)
  1. XARELTO [Suspect]
     Indication: KNEE OPERATION
     Route: 048
     Dates: start: 20120618, end: 20120701
  2. CELEBREX [Concomitant]
     Indication: PAIN
  3. XARELTO [Suspect]
     Indication: THROMBOSIS PROPHYLAXIS
     Route: 048
     Dates: start: 20120618, end: 20120701
  4. TORADOL [Concomitant]
     Indication: PAIN

REACTIONS (1)
  - PULMONARY EMBOLISM [None]
